FAERS Safety Report 25385788 (Version 1)
Quarter: 2025Q2

REPORT INFORMATION
  Report Type: Spontaneous
  Country: US (occurrence: US)
  Receive Date: 20250602
  Receipt Date: 20250602
  Transmission Date: 20250717
  Serious: No
  Sender: BAYER HEALTHCARE PHARMACEUTICALS INC.
  Company Number: US-BAYER-2025A070381

PATIENT
  Age: 24 Year
  Sex: Male

DRUGS (1)
  1. GADAVIST [Suspect]
     Active Substance: GADOBUTROL
     Indication: Magnetic resonance imaging
     Route: 042
     Dates: start: 20210519, end: 20210519

REACTIONS (27)
  - Cognitive disorder [None]
  - Headache [None]
  - Head discomfort [None]
  - Insomnia [None]
  - Muscle twitching [None]
  - Anxiety [None]
  - Depression [None]
  - Skin burning sensation [None]
  - Paraesthesia [None]
  - Panic attack [None]
  - Palpitations [None]
  - Fatigue [None]
  - Hepatic enzyme increased [None]
  - Aspartate aminotransferase increased [None]
  - Abdominal pain [None]
  - Diarrhoea [None]
  - Arthralgia [None]
  - Bone pain [None]
  - Tinnitus [None]
  - Skin disorder [None]
  - Immune system disorder [None]
  - Allergy to chemicals [None]
  - Physical disability [None]
  - Physical deconditioning [None]
  - Emotional distress [None]
  - Post-traumatic stress disorder [None]
  - Contrast media deposition [None]
